FAERS Safety Report 4750275-4 (Version None)
Quarter: 2005Q3

REPORT INFORMATION
  Report Type: 
  Country: None (occurrence: None)
  Receive Date: 20050823
  Receipt Date: 20050705
  Transmission Date: 20060218
  Serious: Yes (Death, Hospitalization, Other)
  Sender: FDA-Public Use
  Company Number: US-AMGEN-ICO141078

PATIENT
  Sex: Male

DRUGS (9)
  1. DARBEPOETIN ALFA [Suspect]
     Indication: RENAL FAILURE CHRONIC
     Route: 042
     Dates: start: 20050512, end: 20050630
  2. LISINOPRIL [Concomitant]
     Route: 048
     Dates: start: 20041102
  3. MINOXIDIL [Concomitant]
     Route: 048
     Dates: start: 20050621
  4. PROCARDIA XL [Concomitant]
     Route: 048
     Dates: start: 20050215
  5. RANITIDINE HYDROCHLORIDE [Concomitant]
     Route: 048
     Dates: start: 20040122
  6. SEVELAMER HCL [Concomitant]
     Route: 048
     Dates: start: 20050605
  7. ERGOCALCIFEROL [Concomitant]
     Route: 048
     Dates: start: 20050510
  8. PARICALCITOL [Concomitant]
     Route: 042
     Dates: start: 20050531
  9. ACETAMINOPHEN [Concomitant]
     Route: 048
     Dates: start: 20040122

REACTIONS (6)
  - ARTERIOVENOUS FISTULA SITE HAEMORRHAGE [None]
  - EXSANGUINATION [None]
  - HYPERTENSION [None]
  - LOSS OF CONSCIOUSNESS [None]
  - REFUSAL OF TREATMENT BY PATIENT [None]
  - VENTRICULAR FIBRILLATION [None]
